FAERS Safety Report 23255210 (Version 1)
Quarter: 2023Q4

REPORT INFORMATION
  Report Type: Spontaneous
  Country: US (occurrence: US)
  Receive Date: 20231203
  Receipt Date: 20231203
  Transmission Date: 20240110
  Serious: No
  Sender: FDA-Public Use
  Company Number: US-AMNEAL PHARMACEUTICALS-2023-AMRX-01901

PATIENT
  Sex: Female
  Weight: 53.061 kg

DRUGS (1)
  1. ISOTRETINOIN [Suspect]
     Active Substance: ISOTRETINOIN
     Indication: Acne
     Dosage: 1 CAPSULES, DAILY
     Route: 048
     Dates: start: 20221220, end: 20230414

REACTIONS (3)
  - Non-cardiac chest pain [Unknown]
  - Fatigue [Unknown]
  - Hordeolum [Unknown]
